FAERS Safety Report 22121185 (Version 1)
Quarter: 2023Q1

REPORT INFORMATION
  Report Type: Spontaneous
  Country: US (occurrence: US)
  Receive Date: 20230321
  Receipt Date: 20230321
  Transmission Date: 20230417
  Serious: No
  Sender: FDA-Public Use
  Company Number: US-BAYER-2023A031699

PATIENT
  Age: 67 Year
  Sex: Male

DRUGS (1)
  1. KERENDIA [Suspect]
     Active Substance: FINERENONE
     Dosage: 20 MG
     Dates: start: 202211

REACTIONS (1)
  - Urine albumin/creatinine ratio increased [None]

NARRATIVE: CASE EVENT DATE: 20230308
